FAERS Safety Report 5590820-2 (Version None)
Quarter: 2008Q1

REPORT INFORMATION
  Report Type: 
  Country: None (occurrence: None)
  Receive Date: 20080110
  Receipt Date: 20071130
  Transmission Date: 20080703
  Serious: Yes (Other)
  Sender: FDA-Public Use
  Company Number: ERP07000038

PATIENT
  Sex: Female

DRUGS (1)
  1. ACTONEL (RISEDRONATES SODIUM) TABLET, UNKNOWNMG [Suspect]
     Dosage: ORAL
     Route: 048

REACTIONS (2)
  - RETINAL DETACHMENT [None]
  - RETINOPATHY [None]
